FAERS Safety Report 8505767-9 (Version None)
Quarter: 2012Q2

REPORT INFORMATION
  Report Type: 
  Country: None (occurrence: None)
  Receive Date: 20120629
  Receipt Date: 20120618
  Transmission Date: 20120825
  Serious: Yes (Other)
  Sender: FDA-Public Use
  Company Number: ENTC2012-0235

PATIENT
  Age: 72 Year
  Sex: Female

DRUGS (4)
  1. STALEVO (LEVODOPA, CARBIDOPA, ENTACAPONE) [Suspect]
     Indication: PARKINSON'S DISEASE
     Dosage: 50 MG
     Dates: start: 20110529
  2. AFLEN [Concomitant]
  3. REQUIP [Concomitant]
  4. NEURONTIN [Concomitant]

REACTIONS (6)
  - NAUSEA [None]
  - URINARY INCONTINENCE [None]
  - ABDOMINAL DISCOMFORT [None]
  - ABDOMINAL PAIN UPPER [None]
  - GRAND MAL CONVULSION [None]
  - DIARRHOEA [None]
